FAERS Safety Report 6586915-7 (Version None)
Quarter: 2010Q1

REPORT INFORMATION
  Report Type: 
  Country: None (occurrence: None)
  Receive Date: 20100217
  Receipt Date: 20090430
  Transmission Date: 20100710
  Serious: Yes (Other)
  Sender: FDA-Public Use
  Company Number: US-ALLERGAN-0815715US

PATIENT
  Age: 78 Year
  Sex: Male
  Weight: 91.61 kg

DRUGS (5)
  1. BOTOX COSMETIC [Suspect]
     Indication: SKIN WRINKLING
     Dosage: 50 UNITS, SINGLE
     Route: 030
     Dates: start: 20081128, end: 20081128
  2. BOTOX COSMETIC [Suspect]
     Dosage: UNK, SINGLE
     Route: 030
  3. BOTOX COSMETIC [Suspect]
     Dosage: UNK, SINGLE
     Route: 030
  4. BOTOX COSMETIC [Suspect]
     Dosage: UNK, SINGLE
     Route: 030
  5. BOTOX COSMETIC [Suspect]
     Dosage: UNK, SINGLE
     Route: 030

REACTIONS (1)
  - MYASTHENIA GRAVIS [None]
